FAERS Safety Report 20747980 (Version 1)
Quarter: 2022Q2

REPORT INFORMATION
  Report Type: Spontaneous
  Country: HU (occurrence: HU)
  Receive Date: 20220425
  Receipt Date: 20220425
  Transmission Date: 20220721
  Serious: Yes (Other)
  Sender: FDA-Public Use
  Company Number: HU-Gedeon Richter Plc.-2022_GR_002638

PATIENT
  Age: 80 Year
  Sex: Male

DRUGS (4)
  1. ZYTIGA [Suspect]
     Active Substance: ABIRATERONE ACETATE
     Indication: Prostate cancer
     Dosage: 2X500MG
     Route: 048
     Dates: start: 20220204, end: 20220401
  2. PREDNISOLONE [Suspect]
     Active Substance: PREDNISOLONE
     Indication: Prostate cancer
     Dosage: 2 X 5 MG
     Dates: start: 20220204, end: 20220401
  3. Algopyrin [Concomitant]
     Indication: Prostate cancer
     Dosage: 2X500MG
     Dates: start: 20220204, end: 20220401
  4. VALSARTAN [Concomitant]
     Active Substance: VALSARTAN
     Indication: Prostate cancer
     Dosage: 2X500MG
     Dates: start: 20220204, end: 20220401

REACTIONS (8)
  - Disturbance in attention [Not Recovered/Not Resolved]
  - Nausea [Not Recovered/Not Resolved]
  - Fatigue [Not Recovered/Not Resolved]
  - Blood pressure increased [Not Recovered/Not Resolved]
  - Headache [Not Recovered/Not Resolved]
  - Decreased appetite [Not Recovered/Not Resolved]
  - Exophthalmos [Not Recovered/Not Resolved]
  - Muscular weakness [Not Recovered/Not Resolved]
